FAERS Safety Report 8929227 (Version 1)
Quarter: 2012Q4

REPORT INFORMATION
  Report Type: Spontaneous
  Country: US (occurrence: None)
  Receive Date: 20121126
  Receipt Date: 20121126
  Transmission Date: 20130627
  Serious: Yes (Disabling)
  Sender: FDA-Public Use
  Company Number: None

PATIENT
  Age: 71 Year
  Sex: Female
  Weight: 76.66 kg

DRUGS (1)
  1. ANAGRELIDE [Suspect]
     Indication: THROMBOCYTOPENIA
     Route: 048
     Dates: start: 2007, end: 2012

REACTIONS (4)
  - Pulmonary fibrosis [None]
  - Renal failure [None]
  - Bone marrow reticulin fibrosis [None]
  - Pulmonary hypertension [None]
